FAERS Safety Report 12970538 (Version 1)
Quarter: 2016Q4

REPORT INFORMATION
  Report Type: Spontaneous
  Country: DE (occurrence: DE)
  Receive Date: 20161123
  Receipt Date: 20161123
  Transmission Date: 20170207
  Serious: Yes (Other)
  Sender: FDA-Public Use
  Company Number: DE-MYLANLABS-2016M1050817

PATIENT

DRUGS (8)
  1. GEMCITABINE [Suspect]
     Active Substance: GEMCITABINE\GEMCITABINE HYDROCHLORIDE
     Indication: MALIGNANT NEOPLASM OF AMPULLA OF VATER
     Dosage: FIRST CYCLE 1000MG/M2 ON DAYS 1,8,15,22,29,36,AND43; SECOND CYCLE ON DAYS 1,8,15, REPEATED ON DAY 29
     Route: 065
  2. FLUOROURACIL. [Concomitant]
     Active Substance: FLUOROURACIL
     Dosage: CONTINUOUS INFUSION OVER 46H; 2400MG/M2 EVERY 2WEEKS; (AS PART OF FOLFOX AND FOLFIRI REGIMEN)
     Route: 050
  3. PACLITAXEL. [Suspect]
     Active Substance: PACLITAXEL
     Indication: MALIGNANT NEOPLASM OF AMPULLA OF VATER
     Dosage: FIRST CYCLE 125MG/M2 ON DAYS 1,8,15,22,29,36,AND43; SECOND CYCLE ON DAYS 1,8,15, REPEATED ON DAY 29
     Route: 065
  4. TINZAPARIN SODIUM [Concomitant]
     Active Substance: TINZAPARIN SODIUM
     Indication: AXILLARY VEIN THROMBOSIS
     Dosage: 175 IU/KG
     Route: 065
  5. OXALIPLATIN. [Suspect]
     Active Substance: OXALIPLATIN
     Indication: MALIGNANT NEOPLASM OF AMPULLA OF VATER
     Dosage: 85 MG/M2
     Route: 065
  6. FOLINIC ACID [Concomitant]
     Active Substance: LEUCOVORIN
     Indication: MALIGNANT NEOPLASM OF AMPULLA OF VATER
     Dosage: 400 MG/M2 (AS PART OF FOLFOX AND FOLFIRI REGIMEN)
     Route: 065
  7. IRINOTECAN [Concomitant]
     Active Substance: IRINOTECAN
     Indication: MALIGNANT NEOPLASM OF AMPULLA OF VATER
     Dosage: 180MG/M2
     Route: 065
  8. FLUOROURACIL. [Concomitant]
     Active Substance: FLUOROURACIL
     Indication: MALIGNANT NEOPLASM OF AMPULLA OF VATER
     Dosage: 400 MG/M2 (AS PART OF FOLFOX AND FOLFIRI REGIMEN)
     Route: 050

REACTIONS (3)
  - Neutropenia [Unknown]
  - Fatigue [Unknown]
  - Polyneuropathy [Recovering/Resolving]
